FAERS Safety Report 7114164-2 (Version None)
Quarter: 2010Q4

REPORT INFORMATION
  Report Type: 
  Country: None (occurrence: None)
  Receive Date: 20101119
  Receipt Date: 20101115
  Transmission Date: 20110411
  Serious: Yes (Death, Hospitalization)
  Sender: FDA-Public Use
  Company Number: US-US-EMD SERONO, INC.-7027728

PATIENT
  Sex: Female

DRUGS (2)
  1. NOVANTRONE [Suspect]
     Dates: end: 20060101
  2. REBIF [Suspect]
     Indication: MULTIPLE SCLEROSIS
     Dates: start: 20040101

REACTIONS (2)
  - CONVULSION [None]
  - PROGRESSIVE MULTIPLE SCLEROSIS [None]
